FAERS Safety Report 8979052 (Version 3)
Quarter: 2013Q1

REPORT INFORMATION
  Report Type: Spontaneous
  Country: US (occurrence: US)
  Receive Date: 20121221
  Receipt Date: 20130205
  Transmission Date: 20140127
  Serious: Yes (Other)
  Sender: FDA-Public Use
  Company Number: PHEH2012US024088

PATIENT
  Age: 72 Year
  Sex: Male

DRUGS (19)
  1. DIOVAN HCT [Suspect]
     Indication: HYPERTENSION
     Dosage: 1 DF (160 MG VAL/25 MG HCT) DAILY
     Route: 048
     Dates: start: 20110712
  2. DIOVAN HCT [Suspect]
     Dosage: 1 DF, (160/25 MG) QD
  3. LASIX [Suspect]
  4. LIPITOR [Concomitant]
     Dosage: 40 MG, QD
  5. ACIPHEX [Concomitant]
     Dosage: 20 MG, QD
  6. TOPROL XL [Concomitant]
     Dosage: 120 MG, QD
  7. IMDUR [Concomitant]
     Dosage: 60 MG, QD
  8. GLUCOPHAGE [Concomitant]
     Dosage: 500 MG, BID
  9. GLYBURIDE [Concomitant]
     Dosage: 2.5 MG, BID
  10. NITROSTAT [Concomitant]
     Dosage: 0.4 MG, PRN
  11. PRED FORTE [Concomitant]
     Dosage: 1 DRP, QD
  12. ASPIRIN [Concomitant]
     Dosage: 325 MG, PRN
  13. NEURONTIN [Concomitant]
     Dosage: 6 DF, (300 MG) DAILY
  14. LORTAB [Concomitant]
     Dosage: 500 MG, PRN
  15. PROCARDIA XL [Concomitant]
     Dosage: 60 MG, QD
  16. ALLOPURINOL [Concomitant]
     Dosage: 100 MG, QD
  17. COLCRYS [Concomitant]
     Dosage: 0.6 MG, QD
  18. ADVAIR [Concomitant]
     Dosage: 2 DF, (250/50 MG) 2 PUFFS PER DAY
  19. METFORMIN [Concomitant]
     Dosage: UNK UKN, UNK

REACTIONS (7)
  - Aneurysm [Unknown]
  - Fall [Unknown]
  - Visual acuity reduced [Unknown]
  - Blood creatinine increased [Unknown]
  - Hypotension [Unknown]
  - Wrong technique in drug usage process [Unknown]
  - Product packaging issue [Unknown]
